FAERS Safety Report 7795842-9 (Version None)
Quarter: 2011Q4

REPORT INFORMATION
  Report Type: 
  Country: None (occurrence: None)
  Receive Date: 20111004
  Receipt Date: 20110713
  Transmission Date: 20120403
  Serious: Yes (Death, Hospitalization)
  Sender: FDA-Public Use
  Company Number: PHHY2011DE63388

PATIENT
  Sex: Male
  Weight: 117 kg

DRUGS (9)
  1. NOVAMINSULFON [Suspect]
     Indication: ARTHRALGIA
     Dosage: 50 MG, QD
     Route: 048
     Dates: start: 20100823
  2. PANTOPRAZOLE [Suspect]
     Indication: ULCER
     Dosage: 20 MG, QD
     Route: 048
     Dates: start: 20100810
  3. ACTRAPID [Suspect]
     Indication: DIABETES MELLITUS
     Dosage: 30 IU, QD
     Route: 058
     Dates: start: 20071031
  4. DICLOFENAC [Suspect]
     Indication: ARTHRALGIA
     Dosage: 150 MG, QD
     Route: 048
     Dates: start: 20100506
  5. METFORMIN HCL [Suspect]
     Indication: DIABETES MELLITUS
     Dosage: 1700 MG, QD
     Route: 048
     Dates: start: 20071031
  6. OXAZEPAM [Suspect]
     Indication: SEDATION
     Dosage: 10 MG, QD
     Route: 048
     Dates: start: 20100810
  7. TORASEMIDE [Suspect]
     Indication: HYPERTENSION
     Dosage: 10 MG, QD
     Route: 048
     Dates: start: 20071031
  8. AMLODIPINE [Suspect]
     Indication: HYPERTENSION
     Dosage: 10 MG, QD
     Route: 048
     Dates: start: 20081125
  9. TAMSULOSIN HCL [Suspect]
     Indication: BENIGN PROSTATIC HYPERPLASIA
     Dosage: 0.4 MG, QD
     Route: 048
     Dates: start: 20090126

REACTIONS (2)
  - SUDDEN CARDIAC DEATH [None]
  - OSTEOARTHRITIS [None]
